FAERS Safety Report 7364422-1 (Version None)
Quarter: 2011Q1

REPORT INFORMATION
  Report Type: 
  Country: None (occurrence: None)
  Receive Date: 20110321
  Receipt Date: 20090619
  Transmission Date: 20110831
  Serious: Yes (Hospitalization, Other)
  Sender: FDA-Public Use
  Company Number: US-BAYER-200924148NA

PATIENT
  Sex: Male
  Weight: 95.238 kg

DRUGS (32)
  1. RED BLOOD CELLS [Concomitant]
     Indication: CORONARY ARTERY BYPASS
     Dosage: 2 U, UNK
     Dates: start: 20051214
  2. LASIX [Concomitant]
     Dosage: 80 MG, BID
     Route: 042
     Dates: start: 20051217, end: 20051218
  3. LASIX [Concomitant]
     Dosage: UNK
     Route: 048
     Dates: start: 20051219
  4. ADENOSINE [Concomitant]
     Indication: CARDIAC STRESS TEST
     Dosage: UNK
     Route: 042
     Dates: start: 20051128, end: 20051128
  5. VERSED [Concomitant]
     Dosage: 5 MG, UNK
     Route: 042
     Dates: start: 20051214
  6. OMNIPAQUE 140 [Concomitant]
     Indication: CATHETERISATION CARDIAC
     Dosage: 125 ML, UNK
     Dates: start: 20051129
  7. OMNIPAQUE 140 [Concomitant]
     Indication: COMPUTERISED TOMOGRAM
     Dosage: 100 ML, UNK
     Dates: start: 20051209
  8. HEPARIN SODIUM [Concomitant]
     Dosage: 10 ML, PRIME
     Dates: start: 20051214
  9. INSULIN [Concomitant]
     Dosage: TITRATE
     Route: 042
     Dates: start: 20051214
  10. TRASYLOL [Suspect]
     Indication: CORONARY ARTERY BYPASS
     Dosage: 1 ML INITIAL (TEST) DOSE
     Route: 042
     Dates: start: 20051214
  11. TRASYLOL [Suspect]
     Dosage: LOADING DOSE: 200 ML, THEN 50ML/HR
     Route: 042
     Dates: start: 20051214, end: 20051214
  12. RED BLOOD CELLS [Concomitant]
     Indication: CORONARY ARTERY BYPASS
     Dosage: 675 ML, UNK
     Dates: start: 20051214
  13. LASIX [Concomitant]
     Dosage: 40 MG, BID
     Route: 048
     Dates: start: 20051220
  14. HEPARIN SODIUM [Concomitant]
     Dosage: 37.000 U, CARDIOPULMONARY BYPASS
     Dates: start: 20051214
  15. ASPIRIN [Concomitant]
     Dosage: 81 MG, QD
     Route: 048
     Dates: end: 20051228
  16. PHENYLEPHRINE [Concomitant]
     Indication: PROPHYLAXIS
     Dosage: CARDIOPULMONARY BYPASS
     Dates: start: 20051214
  17. METFORMIN [Concomitant]
  18. GLYBURIDE [Concomitant]
  19. DOPAMINE [Concomitant]
     Dosage: TITRATE
     Route: 042
     Dates: start: 20051214
  20. LASIX [Concomitant]
     Dosage: 40 MG, BID
     Route: 042
     Dates: start: 20051127, end: 20051127
  21. LISINOPRIL [Concomitant]
     Indication: HYPERTENSION
     Dosage: 5 MG, BID
     Route: 048
  22. LOPRESSOR [Concomitant]
     Dosage: 25 MG, BID
     Route: 048
     Dates: end: 20051213
  23. IMDUR [Concomitant]
     Dosage: 30 MG, QD
     Route: 048
     Dates: start: 20051209
  24. LASIX [Concomitant]
     Dosage: 40 MG, BID
     Route: 048
     Dates: start: 20051127
  25. MANNITOL [Concomitant]
     Dosage: 100 ML, PRIME
     Dates: start: 20051214
  26. PROTAMIN [Concomitant]
     Dosage: 450 MG
     Route: 042
     Dates: start: 20051214
  27. AMIODARONE HCL [Concomitant]
     Indication: ATRIAL FIBRILLATION
     Dosage: 600 MG, PREOPERATIVELY
     Route: 048
     Dates: start: 20051214
  28. LASIX [Concomitant]
     Dosage: 40 MG, UNK
     Route: 042
     Dates: start: 20051216
  29. COREG [Concomitant]
  30. LASIX [Concomitant]
     Dosage: 20 MG, CARDIOPULMONARY BYPASS
     Dates: start: 20051214
  31. VANCOMYCIN [Concomitant]
     Dosage: 1000 MG, BID
     Route: 042
     Dates: start: 20051128, end: 20051130
  32. HEPARIN SODIUM [Concomitant]
     Dosage: 50.000 U, UNK
     Route: 042
     Dates: start: 20051214

REACTIONS (7)
  - PAIN [None]
  - EMOTIONAL DISTRESS [None]
  - STRESS [None]
  - ANXIETY [None]
  - UNEVALUABLE EVENT [None]
  - CEREBROVASCULAR ACCIDENT [None]
  - FEAR [None]
